APPROVED DRUG PRODUCT: CETIRIZINE HYDROCHLORIDE ALLERGY
Active Ingredient: CETIRIZINE HYDROCHLORIDE
Strength: 10MG
Dosage Form/Route: TABLET;ORAL
Application: A079191 | Product #004
Applicant: TORRENT PHARMACEUTICALS LLC
Approved: Apr 15, 2010 | RLD: No | RS: No | Type: DISCN